FAERS Safety Report 6727309-0 (Version None)
Quarter: 2010Q2

REPORT INFORMATION
  Report Type: 
  Country: None (occurrence: None)
  Receive Date: 20100512
  Receipt Date: 20100407
  Transmission Date: 20101027
  Serious: No
  Sender: FDA-Public Use
  Company Number: 1000013038

PATIENT
  Age: 42 Year
  Sex: Female

DRUGS (7)
  1. SAVELLA [Suspect]
     Indication: FIBROMYALGIA
     Dosage: 12.5 MG (12.5 MG, 1 IN 1 D), ORAL, 50MG (25 MG, 2 IN 1 D) 100MG (50 MG, 2 IN 1 D)
     Route: 048
     Dates: start: 20100327, end: 20100327
  2. GABAPENTIN [Concomitant]
  3. LAMOTRIGINE [Concomitant]
  4. CLONAZEPAM [Concomitant]
  5. NAPROXEN [Concomitant]
  6. ASPIRIN [Concomitant]
  7. VITAMINS [Concomitant]

REACTIONS (2)
  - HYPERHIDROSIS [None]
  - NAUSEA [None]
